FAERS Safety Report 14473450 (Version 1)
Quarter: 2018Q1

REPORT INFORMATION
  Report Type: Spontaneous
  Country: US (occurrence: US)
  Receive Date: 20180201
  Receipt Date: 20180201
  Transmission Date: 20180509
  Serious: No
  Sender: FDA-Public Use
  Company Number: US-TEVA-763687ACC

PATIENT
  Sex: Female

DRUGS (1)
  1. HYDROCHLOROTHIAZIDE. [Suspect]
     Active Substance: HYDROCHLOROTHIAZIDE
     Indication: NEPHROLITHIASIS
     Dates: start: 2016, end: 20170423

REACTIONS (3)
  - Pollakiuria [Recovering/Resolving]
  - Weight decreased [Unknown]
  - Energy increased [Unknown]

NARRATIVE: CASE EVENT DATE: 2016
